FAERS Safety Report 12772358 (Version 1)
Quarter: 2016Q3

REPORT INFORMATION
  Report Type: Spontaneous
  Country: IT (occurrence: IT)
  Receive Date: 20160922
  Receipt Date: 20160922
  Transmission Date: 20161109
  Serious: Yes (Death, Hospitalization)
  Sender: FDA-Public Use
  Company Number: IT-MYLANLABS-2016M1039473

PATIENT

DRUGS (3)
  1. VORICONAZOLE. [Suspect]
     Active Substance: VORICONAZOLE
     Indication: MENINGITIS CANDIDA
     Dosage: 12 MG DAILY
     Route: 042
  2. FLUCONAZOLE MYLAN [Suspect]
     Active Substance: FLUCONAZOLE
     Indication: MENINGITIS CANDIDA
     Dosage: 400 MG DAILY
  3. AMPHOTERICIN B, LIPOSOME [Suspect]
     Active Substance: AMPHOTERICIN B
     Indication: MENINGITIS CANDIDA
     Dosage: 3 MG/KG DAILY

REACTIONS (4)
  - Bacterial sepsis [Fatal]
  - Condition aggravated [Not Recovered/Not Resolved]
  - Treatment failure [Not Recovered/Not Resolved]
  - Meningitis [Not Recovered/Not Resolved]
